FAERS Safety Report 7628565-7 (Version None)
Quarter: 2011Q3

REPORT INFORMATION
  Report Type: 
  Country: None (occurrence: None)
  Receive Date: 20110711
  Receipt Date: 20110630
  Transmission Date: 20111222
  Serious: Yes (Death, Disabling, Other)
  Sender: FDA-Public Use
  Company Number: 200813970

PATIENT
  Sex: Male
  Weight: 59.8748 kg

DRUGS (26)
  1. DOXYCYCLINE [Concomitant]
  2. XALATAN [Concomitant]
  3. ZANTAC [Concomitant]
  4. TUMS (CALCIUM CARBONATE) [Concomitant]
  5. MIRALAX [Concomitant]
  6. NASAL SALINE (SODIUM CHLORIDE) [Concomitant]
  7. GAS X (DIMETICONE, ACTIVATED) [Concomitant]
  8. ZEMAIRA [Suspect]
     Dosage: (60 MG/KG 1X/WEEK, INFUSED 3932MG MG (4.8ML PER MINUTE)  INTRAVENOUS (NOT OTHERWISE SPECIFIED))
     Route: 042
     Dates: start: 20110601
  9. ZYRTEC [Concomitant]
  10. PULMICORT [Concomitant]
  11. COMBIVENT [Suspect]
  12. BACITRACIN [Concomitant]
  13. DUONEB [Concomitant]
  14. NYSTATIN [Concomitant]
  15. MUCINEX [Concomitant]
  16. OXYGEN (OXYGEN) [Concomitant]
  17. ZEMAIRA [Suspect]
     Indication: ALPHA-1 ANTI-TRYPSIN DEFICIENCY
     Dosage: (4800 MG 1X/WEEK INTRAVENOUS (NOT OTHERWISE SPECIFIED))
     Route: 042
     Dates: end: 20080814
  18. CARDIZEM [Concomitant]
  19. METAMUCIL (METAMUCIL /01430601/) [Concomitant]
  20. MULTIVITAMIN (MULTIVITAMIN /01229101/) [Concomitant]
  21. ACCOLATE [Concomitant]
  22. PREDNISONE [Concomitant]
  23. AMLODIPINE [Concomitant]
  24. HYDROCODONE (HYDROCODONE) [Concomitant]
  25. LORASEPAM (LORAZEPAM) [Concomitant]
  26. AMOXICILLIN [Concomitant]

REACTIONS (6)
  - MUCOUS MEMBRANE DISORDER [None]
  - TINNITUS [None]
  - DISTURBANCE IN ATTENTION [None]
  - TREMOR [None]
  - INSOMNIA [None]
  - ASTHENIA [None]
